FAERS Safety Report 5197590-0 (Version None)
Quarter: 2007Q1

REPORT INFORMATION
  Report Type: 
  Country: None (occurrence: None)
  Receive Date: 20070103
  Receipt Date: 20061222
  Transmission Date: 20070707
  Serious: Yes (Other)
  Sender: FDA-Public Use
  Company Number: US-PFIZER INC-2006113221

PATIENT
  Sex: Female
  Weight: 61.2 kg

DRUGS (3)
  1. AROMASIN [Suspect]
     Indication: BREAST CANCER
     Route: 048
  2. VITAMINS [Concomitant]
  3. CALCIUM [Concomitant]

REACTIONS (4)
  - MOOD SWINGS [None]
  - OVARIAN CYST [None]
  - PERITONEAL CYST [None]
  - PHARMACEUTICAL PRODUCT COMPLAINT [None]
